FAERS Safety Report 4534977-0 (Version None)
Quarter: 2004Q4

REPORT INFORMATION
  Report Type: 
  Country: None (occurrence: None)
  Receive Date: 20041222
  Receipt Date: 20041014
  Transmission Date: 20050328
  Serious: No
  Sender: FDA-Public Use
  Company Number: US-BRISTOL-MYERS SQUIBB COMPANY-12732418

PATIENT
  Age: 79 Year
  Sex: Female
  Weight: 73 kg

DRUGS (10)
  1. PRAVACHOL [Suspect]
     Route: 048
  2. ASPIRIN [Concomitant]
  3. COUMADIN [Concomitant]
  4. ZANTAC [Concomitant]
  5. UNIRETIC [Concomitant]
  6. MULTIVITAMIN [Concomitant]
  7. CALCIUM [Concomitant]
  8. CENTRUM [Concomitant]
  9. ALEVE [Concomitant]
  10. LIBRAX [Concomitant]

REACTIONS (1)
  - AMNESIA [None]
